FAERS Safety Report 13902984 (Version 1)
Quarter: 2017Q3

REPORT INFORMATION
  Report Type: Spontaneous
  Country: US (occurrence: US)
  Receive Date: 20170824
  Receipt Date: 20170824
  Transmission Date: 20171127
  Serious: No
  Sender: FDA-Public Use
  Company Number: PHEH2017US025677

PATIENT
  Age: 58 Year
  Sex: Female
  Weight: 63.49 kg

DRUGS (1)
  1. LORATADINE TABLETS [Suspect]
     Active Substance: LORATADINE
     Indication: HYPERSENSITIVITY
     Dosage: UNK, QD
     Route: 065
     Dates: start: 20170430, end: 20170813

REACTIONS (2)
  - Pain [Not Recovered/Not Resolved]
  - Hypoaesthesia [Not Recovered/Not Resolved]

NARRATIVE: CASE EVENT DATE: 20170814
